FAERS Safety Report 4837029-5 (Version None)
Quarter: 2005Q4

REPORT INFORMATION
  Report Type: 
  Country: None (occurrence: None)
  Receive Date: 20051121
  Receipt Date: 20051108
  Transmission Date: 20060501
  Serious: Yes (Hospitalization, Other)
  Sender: FDA-Public Use
  Company Number: HQWYE50131NOV05

PATIENT
  Age: 62 Year
  Sex: Female

DRUGS (6)
  1. RAPAMUNE [Suspect]
     Indication: PROPHYLAXIS AGAINST TRANSPLANT REJECTION
     Dosage: 2 + 3MG 1X PER 1 DAY ORAL
     Route: 048
     Dates: start: 20040721, end: 20041025
  2. RAPAMUNE [Suspect]
     Indication: PROPHYLAXIS AGAINST TRANSPLANT REJECTION
     Dosage: 2 + 3MG 1X PER 1 DAY ORAL
     Route: 048
     Dates: start: 20041026, end: 20041111
  3. CYCLOSPORINE [Concomitant]
  4. CYCLOSPORINE [Concomitant]
  5. PREDNISONE [Concomitant]
  6. PREDNISONE [Concomitant]

REACTIONS (4)
  - COMPLICATIONS OF TRANSPLANTED KIDNEY [None]
  - HAEMODIALYSIS [None]
  - KIDNEY TRANSPLANT REJECTION [None]
  - RENAL TUBULAR NECROSIS [None]
